FAERS Safety Report 24709814 (Version 1)
Quarter: 2024Q4

REPORT INFORMATION
  Report Type: Spontaneous
  Country: GB (occurrence: GB)
  Receive Date: 20241209
  Receipt Date: 20241209
  Transmission Date: 20250114
  Serious: Yes (Other)
  Sender: AUROBINDO
  Company Number: GB-MHRA-TPP15062011C11237307YC1732018179079

PATIENT
  Age: 92 Year
  Sex: Male
  Weight: 57 kg

DRUGS (18)
  1. GABAPENTIN [Suspect]
     Active Substance: GABAPENTIN
     Indication: Product used for unknown indication
     Dosage: 300 MILLIGRAM, ONCE A DAY (ON DAY 1, THEN ONE CAPSULE TWICE DAILY ON DAY 2, THEN ONE CAPSULE THREE T
     Route: 048
     Dates: start: 20241022, end: 20241114
  2. COAL TAR\COCONUT OIL\SALICYLIC ACID [Concomitant]
     Active Substance: COAL TAR\COCONUT OIL\SALICYLIC ACID
     Indication: Ill-defined disorder
     Dosage: USE TO WASH HAIR
     Route: 065
     Dates: start: 20240828, end: 20240911
  3. CLOBETASONE BUTYRATE [Concomitant]
     Active Substance: CLOBETASONE BUTYRATE
     Indication: Ill-defined disorder
     Dosage: APPLY ONCE DAILY TO RASH ON NECK
     Route: 065
     Dates: start: 20240927, end: 20241011
  4. MINERAL OIL\PARAFFIN [Concomitant]
     Active Substance: MINERAL OIL\PARAFFIN
     Indication: Ill-defined disorder
     Dosage: USE TO MOISTURISE WITH DAILY
     Route: 065
     Dates: start: 20240828
  5. Eyeaze [Concomitant]
     Indication: Ill-defined disorder
     Dosage: 1 DROP (IN TO THE AFFECTED EYE(S) TWO TO FOUR)
     Route: 065
     Dates: start: 20240828
  6. MENTHOL [Concomitant]
     Active Substance: MENTHOL
     Indication: Ill-defined disorder
     Dosage: APPLY AS NEEDED
     Route: 065
     Dates: start: 20240828, end: 20240925
  7. FEXOFENADINE [Concomitant]
     Active Substance: FEXOFENADINE HYDROCHLORIDE
     Indication: Ill-defined disorder
     Dosage: 1 DOSAGE FORM, DAILY
     Route: 065
     Dates: start: 20240918, end: 20241018
  8. KETOCONAZOLE [Concomitant]
     Active Substance: KETOCONAZOLE
     Indication: Ill-defined disorder
     Dosage: USE TWICE WEEKLY WHEN WASHING HAIR, LEAVE ON FO...
     Route: 065
     Dates: start: 20240927, end: 20241025
  9. Betacap [Concomitant]
     Indication: Ill-defined disorder
     Dosage: APPLY ONCE DAILY
     Route: 065
     Dates: start: 20241014, end: 20241021
  10. ACYCLOVIR [Concomitant]
     Active Substance: ACYCLOVIR
     Indication: Ill-defined disorder
     Dosage: 1 DOSAGE FORM, 5 TIMES A DAY
     Route: 065
     Dates: start: 20241029, end: 20241105
  11. CETIRIZINE [Concomitant]
     Active Substance: CETIRIZINE HYDROCHLORIDE
     Indication: Ill-defined disorder
     Dosage: 1 DOSAGE FORM, DAILY
     Route: 065
     Dates: start: 20241115
  12. PREDNISOLONE [Concomitant]
     Active Substance: PREDNISOLONE
     Indication: Ill-defined disorder
     Dosage: 6 DOSAGE FORM, ONCE A DAY (AS A SINGLE DOSE)
     Route: 065
     Dates: start: 20241115
  13. PREGABALIN [Concomitant]
     Active Substance: PREGABALIN
     Indication: Ill-defined disorder
     Dosage: 1 DOSAGE FORM, TWO TIMES A DAY
     Route: 065
     Dates: start: 20241115
  14. APIXABAN [Concomitant]
     Active Substance: APIXABAN
     Indication: Ill-defined disorder
     Dosage: 1 DOSAGE FORM, TWO TIMES A DAY (TO THIN BLOOD)
     Route: 065
     Dates: start: 20240710
  15. BISOPROLOL [Concomitant]
     Active Substance: BISOPROLOL
     Indication: Ill-defined disorder
     Dosage: 1 DOSAGE FORM, DAILY
     Route: 065
     Dates: start: 20240710
  16. BIMATOPROST\TIMOLOL [Concomitant]
     Active Substance: BIMATOPROST\TIMOLOL
     Indication: Ill-defined disorder
     Dosage: 1 DROP, ONCE A DAY (TO BOTH EYES)
     Route: 065
     Dates: start: 20240710
  17. LOSARTAN [Concomitant]
     Active Substance: LOSARTAN
     Indication: Ill-defined disorder
     Dosage: 1 DOSAGE FORM, DAILY
     Route: 065
     Dates: start: 20240710
  18. SIMVASTATIN [Concomitant]
     Active Substance: SIMVASTATIN
     Indication: Ill-defined disorder
     Dosage: 1 DOSAGE FORM, AT BED TIME (INSTEAD OF ATORVASTATIN FOR)
     Route: 065
     Dates: start: 20240710

REACTIONS (1)
  - Dermatitis allergic [Recovering/Resolving]

NARRATIVE: CASE EVENT DATE: 20241104
